FAERS Safety Report 8612163-2 (Version None)
Quarter: 2012Q3

REPORT INFORMATION
  Report Type: 
  Country: None (occurrence: None)
  Receive Date: 20120822
  Receipt Date: 20120815
  Transmission Date: 20120928
  Serious: Yes (Other)
  Sender: FDA-Public Use
  Company Number: CO-PFIZER INC-2012201987

PATIENT
  Age: 6 Year
  Sex: Female

DRUGS (1)
  1. GENOTROPIN [Suspect]
     Indication: CHONDRODYSTROPHY
     Dosage: 1.7 MG, 1X/DAY
     Route: 058
     Dates: start: 20091123

REACTIONS (4)
  - INJECTION SITE PAIN [None]
  - EPILEPSY [None]
  - INJECTION SITE ERYTHEMA [None]
  - INJECTION SITE PRURITUS [None]
